FAERS Safety Report 9642214 (Version 2)
Quarter: 2013Q4

REPORT INFORMATION
  Report Type: Spontaneous
  Country: CH (occurrence: CH)
  Receive Date: 20131024
  Receipt Date: 20131024
  Transmission Date: 20140711
  Serious: Yes (Other)
  Sender: FDA-Public Use
  Company Number: CH-009507513-1309CHE013363

PATIENT
  Age: 17 Year
  Sex: Female
  Weight: 48 kg

DRUGS (1)
  1. IMPLANON NXT [Suspect]
     Indication: CONTRACEPTION
     Dosage: INSERTED INTO THE LEFT UPPER ARM
     Route: 058
     Dates: start: 20130627, end: 20130830

REACTIONS (6)
  - Implant site abscess [Recovered/Resolved]
  - Device expulsion [Recovered/Resolved]
  - Implant site inflammation [Recovered/Resolved]
  - Incision site infection [Recovered/Resolved]
  - Excessive granulation tissue [Unknown]
  - Keloid scar [Unknown]
